FAERS Safety Report 6631524-4 (Version None)
Quarter: 2010Q1

REPORT INFORMATION
  Report Type: 
  Country: None (occurrence: None)
  Receive Date: 20100312
  Receipt Date: 20100301
  Transmission Date: 20100710
  Serious: Yes (Other)
  Sender: FDA-Public Use
  Company Number: PHEH2007US04447

PATIENT

DRUGS (22)
  1. AREDIA [Suspect]
     Indication: BONE NEOPLASM MALIGNANT
     Dosage: 90 MG, MONTHLY
     Dates: end: 20030303
  2. AREDIA [Suspect]
     Indication: MULTIPLE MYELOMA
  3. ZOMETA [Suspect]
  4. IRON [Concomitant]
  5. CLINDA [Concomitant]
  6. CEPHALEXIN [Concomitant]
  7. ZITHROMAX [Concomitant]
  8. TORADOL [Concomitant]
  9. IBUPROFEN [Concomitant]
  10. FLEXERIL [Concomitant]
  11. LIPITOR [Concomitant]
  12. DECADRON [Concomitant]
  13. ZOCOR [Concomitant]
  14. MELPHALAN HYDROCHLORIDE [Concomitant]
  15. PREDNISONE [Concomitant]
  16. ATENOLOL [Concomitant]
  17. ZETIA [Concomitant]
  18. METOPROLOL TARTRATE [Concomitant]
  19. VELCADE [Concomitant]
  20. PROCRIT                            /00909301/ [Concomitant]
  21. NEUPOGEN [Concomitant]
  22. CHEMOTHERAPEUTICS NOS [Concomitant]

REACTIONS (22)
  - ACTINOMYCOSIS [None]
  - ANXIETY [None]
  - BONE DISORDER [None]
  - BONE GRAFT [None]
  - DEFORMITY [None]
  - EMOTIONAL DISTRESS [None]
  - GINGIVAL BLEEDING [None]
  - GINGIVAL PAIN [None]
  - HYPOAESTHESIA FACIAL [None]
  - HYPOPHAGIA [None]
  - INFECTION [None]
  - INTERVERTEBRAL DISC PROTRUSION [None]
  - OSTEOMYELITIS [None]
  - OSTEONECROSIS [None]
  - PAIN [None]
  - PANCYTOPENIA [None]
  - SCIATICA [None]
  - SEBORRHOEIC KERATOSIS [None]
  - SEQUESTRECTOMY [None]
  - SKIN LESION [None]
  - SURGERY [None]
  - SWELLING [None]
